FAERS Safety Report 5757598-0 (Version None)
Quarter: 2008Q2

REPORT INFORMATION
  Report Type: 
  Country: None (occurrence: None)
  Receive Date: 20080603
  Receipt Date: 20080522
  Transmission Date: 20081010
  Serious: Yes (Other)
  Sender: FDA-Public Use
  Company Number: US-PFIZER INC-2008023593

PATIENT
  Sex: Male
  Weight: 79.4 kg

DRUGS (4)
  1. NEURONTIN [Suspect]
     Indication: SPINAL COLUMN STENOSIS
     Route: 048
  2. WARFARIN SODIUM [Interacting]
  3. NAPROXEN [Concomitant]
  4. CARBAMAZEPINE [Concomitant]

REACTIONS (4)
  - ATAXIA [None]
  - BALANCE DISORDER [None]
  - DRUG INTERACTION [None]
  - OEDEMA PERIPHERAL [None]
